FAERS Safety Report 7998577-2 (Version None)
Quarter: 2011Q4

REPORT INFORMATION
  Report Type: 
  Country: None (occurrence: None)
  Receive Date: 20111219
  Receipt Date: 20111129
  Transmission Date: 20120403
  Serious: Yes (Hospitalization)
  Sender: FDA-Public Use
  Company Number: 2011PROUSA00815

PATIENT
  Age: 83 Year
  Sex: Male
  Weight: 93.8492 kg

DRUGS (13)
  1. LISINOPRIL [Suspect]
  2. ATENOLOL [Concomitant]
  3. PROVENGE [Suspect]
     Indication: PROSTATE CANCER METASTATIC
     Dosage: 250 ML, SINGLE, INTRAVENOUS
     Route: 042
     Dates: start: 20111031, end: 20111031
  4. LUPRON [Concomitant]
  5. AMLODIPINE [Concomitant]
  6. SPIRONOLACTONE [Suspect]
  7. FOLIC ACID [Concomitant]
  8. SELENIUM (SELENIUM) [Concomitant]
  9. ASACOL [Concomitant]
  10. ACETYLSALICYLIC ACID (ACETYLSALICYLIC ACID), 81 MG [Concomitant]
  11. DENOSUMAB (DENOSUMAB) [Concomitant]
  12. PROVENGE [Suspect]
     Dates: start: 20111114, end: 20111114
  13. CITRACAL + D /01438101/ (CALCIUM CITRATE, ERGOCALCIFEROL) [Concomitant]

REACTIONS (5)
  - DEVICE RELATED INFECTION [None]
  - ATRIAL FIBRILLATION [None]
  - CARDIAC FAILURE [None]
  - PULMONARY OEDEMA [None]
  - HYPERKALAEMIA [None]
